FAERS Safety Report 8317608-3 (Version None)
Quarter: 2012Q2

REPORT INFORMATION
  Report Type: 
  Country: None (occurrence: None)
  Receive Date: 20120427
  Receipt Date: 20120227
  Transmission Date: 20120825
  Serious: No
  Sender: FDA-Public Use
  Company Number: US-GLAXOSMITHKLINE-A0967959A

PATIENT
  Sex: Female

DRUGS (1)
  1. ZOFRAN [Suspect]
     Indication: PRODUCT USED FOR UNKNOWN INDICATION
     Dosage: 4MG UNKNOWN
     Route: 065
     Dates: start: 20091002

REACTIONS (1)
  - MALAISE [None]
